FAERS Safety Report 9581954 (Version 1)
Quarter: 2013Q4

REPORT INFORMATION
  Report Type: Spontaneous
  Country: US (occurrence: US)
  Receive Date: 20131002
  Receipt Date: 20131002
  Transmission Date: 20140711
  Serious: No
  Sender: FDA-Public Use
  Company Number: US-TEVA-428623USA

PATIENT
  Sex: 0

DRUGS (1)
  1. AMIKACIN [Suspect]
     Dosage: 100 MG/KG DAILY; 250MG/ML 10 X 2ML
     Route: 055

REACTIONS (2)
  - Drug prescribing error [Unknown]
  - Drug dispensing error [Unknown]
